FAERS Safety Report 21648655 (Version 1)
Quarter: 2022Q4

REPORT INFORMATION
  Report Type: Spontaneous
  Country: UA (occurrence: None)
  Receive Date: 20221128
  Receipt Date: 20221128
  Transmission Date: 20230112
  Serious: Yes (Hospitalization)
  Sender: FDA-Public Use
  Company Number: UA-ROCHE-3224408

PATIENT
  Age: 53 Year
  Sex: Male

DRUGS (35)
  1. RITUXIMAB [Suspect]
     Active Substance: RITUXIMAB
     Indication: Diffuse large B-cell lymphoma refractory
     Route: 042
     Dates: start: 20211011, end: 20220312
  2. RITUXIMAB [Suspect]
     Active Substance: RITUXIMAB
     Route: 042
     Dates: start: 20220405
  3. RITUXIMAB [Suspect]
     Active Substance: RITUXIMAB
     Dosage: 1ST COURSE OF PCT ACCORDING TO R-IGEV REGIMEN
     Route: 042
     Dates: start: 20220428
  4. RITUXIMAB [Suspect]
     Active Substance: RITUXIMAB
     Dosage: 1ST COURSE OF PCT ACCORDING TO R-DHAP REGIMEN
     Route: 042
     Dates: start: 20220615
  5. RITUXIMAB [Suspect]
     Active Substance: RITUXIMAB
     Dosage: 2ND COURSE OF PCT ACCORDING TO R-DHAP REGIMEN
     Route: 042
     Dates: start: 20220707
  6. RITUXIMAB [Suspect]
     Active Substance: RITUXIMAB
     Route: 042
     Dates: start: 20220810
  7. RITUXIMAB [Suspect]
     Active Substance: RITUXIMAB
     Dosage: 2ND COURSE OF PCT ACCORDING TO POLA-R-B PROTOCOL
     Route: 042
     Dates: start: 20220908
  8. RITUXIMAB [Suspect]
     Active Substance: RITUXIMAB
     Dosage: 3RD COURSE OF PCT ACCORDING TO POLA-R-B PROTOCOL
     Route: 042
     Dates: start: 20221010
  9. RITUXIMAB [Suspect]
     Active Substance: RITUXIMAB
     Dosage: 2ND COURSE OF PCT ACCORDING TO R-IGEV REGIMEN
     Route: 042
     Dates: start: 20220520
  10. POLIVY [Suspect]
     Active Substance: POLATUZUMAB VEDOTIN-PIIQ
     Indication: Diffuse large B-cell lymphoma refractory
     Dosage: DAY 1
     Route: 042
     Dates: start: 20220810
  11. POLIVY [Suspect]
     Active Substance: POLATUZUMAB VEDOTIN-PIIQ
     Dosage: 2ND COURSE OF PCT ACCORDING TO POLA-R-B PROTOCOL
     Route: 065
     Dates: start: 20220908
  12. POLIVY [Suspect]
     Active Substance: POLATUZUMAB VEDOTIN-PIIQ
     Dosage: 3RD COURSE OF PCT ACCORDING TO POLA-R-B PROTOCOL
     Route: 065
     Dates: start: 20221010
  13. IFOSFAMIDE [Suspect]
     Active Substance: IFOSFAMIDE
     Indication: Product used for unknown indication
     Route: 065
     Dates: start: 20220405
  14. IFOSFAMIDE [Suspect]
     Active Substance: IFOSFAMIDE
     Route: 065
     Dates: start: 20220428
  15. IFOSFAMIDE [Suspect]
     Active Substance: IFOSFAMIDE
     Dosage: 2ND COURSE OF PCT ACCORDING TO R-IGEV REGIMEN
     Route: 065
     Dates: start: 20220520
  16. CARBOPLATIN [Suspect]
     Active Substance: CARBOPLATIN
     Indication: Product used for unknown indication
     Route: 065
     Dates: start: 20220405
  17. ETOPOSIDE [Suspect]
     Active Substance: ETOPOSIDE
     Indication: Product used for unknown indication
     Route: 065
     Dates: start: 20220405
  18. GEMCITABINE [Suspect]
     Active Substance: GEMCITABINE
     Indication: Product used for unknown indication
     Route: 065
     Dates: start: 20220428
  19. GEMCITABINE [Suspect]
     Active Substance: GEMCITABINE
     Dosage: 2ND COURSE OF PCT ACCORDING TO R-IGEV REGIMEN
     Route: 065
     Dates: start: 20220520
  20. VINORELBINE [Suspect]
     Active Substance: VINORELBINE TARTRATE
     Indication: Product used for unknown indication
     Route: 065
     Dates: start: 20220428
  21. VINORELBINE [Suspect]
     Active Substance: VINORELBINE TARTRATE
     Dosage: 2ND COURSE OF PCT ACCORDING TO R-IGEV REGIMEN
     Route: 065
     Dates: start: 20220520
  22. DEXAMETHASONE [Suspect]
     Active Substance: DEXAMETHASONE
     Indication: Product used for unknown indication
     Dosage: 1ST COURSE OF PCT ACCORDING TO R-DHAP REGIMEN
     Route: 065
     Dates: start: 20220615
  23. DEXAMETHASONE [Suspect]
     Active Substance: DEXAMETHASONE
     Dosage: 2ND COURSE OF PCT ACCORDING TO R-DHAP REGIMEN
     Route: 065
     Dates: start: 20220707
  24. CYTARABINE [Suspect]
     Active Substance: CYTARABINE
     Indication: Product used for unknown indication
     Dosage: 1ST COURSE OF PCT ACCORDING TO R-DHAP REGIMEN
     Route: 065
     Dates: start: 20220615
  25. CYTARABINE [Suspect]
     Active Substance: CYTARABINE
     Dosage: 2ND COURSE OF PCT ACCORDING TO R-DHAP REGIMEN
     Route: 065
     Dates: start: 20220707
  26. CISPLATIN [Suspect]
     Active Substance: CISPLATIN
     Indication: Product used for unknown indication
     Dosage: 1ST COURSE OF PCT ACCORDING TO R-DHAP REGIMEN
     Route: 065
     Dates: start: 20220615
  27. CISPLATIN [Suspect]
     Active Substance: CISPLATIN
     Dosage: 2ND COURSE OF PCT ACCORDING TO R-DHAP REGIMEN
     Route: 065
     Dates: start: 20220707
  28. BENDAMUSTINE [Suspect]
     Active Substance: BENDAMUSTINE
     Indication: Diffuse large B-cell lymphoma refractory
     Route: 042
     Dates: start: 20220810
  29. BENDAMUSTINE [Suspect]
     Active Substance: BENDAMUSTINE
     Route: 042
  30. BENDAMUSTINE [Suspect]
     Active Substance: BENDAMUSTINE
     Dosage: 2ND COURSE OF PCT ACCORDING TO POLA-R-B PROTOCOL
     Route: 065
     Dates: start: 20220908
  31. BENDAMUSTINE [Suspect]
     Active Substance: BENDAMUSTINE
     Dosage: 3RD COURSE OF PCT ACCORDING TO POLA-R-B PROTOCOL
     Route: 065
     Dates: start: 20221010
  32. CYCLOPHOSPHAMIDE [Suspect]
     Active Substance: CYCLOPHOSPHAMIDE
     Indication: Product used for unknown indication
     Route: 065
     Dates: start: 20211011, end: 20220312
  33. DOXORUBICIN [Suspect]
     Active Substance: DOXORUBICIN
     Indication: Product used for unknown indication
     Route: 065
     Dates: start: 20211011, end: 20220312
  34. VINCRISTINE [Suspect]
     Active Substance: VINCRISTINE
     Indication: Product used for unknown indication
     Route: 065
     Dates: start: 20211011, end: 20220312
  35. PREDNISOLONE [Suspect]
     Active Substance: PREDNISOLONE
     Indication: Product used for unknown indication
     Route: 065
     Dates: start: 20211011, end: 20220312

REACTIONS (5)
  - Disease progression [Unknown]
  - Pyrexia [Unknown]
  - Sinus tachycardia [Unknown]
  - Dysphagia [Unknown]
  - Neck mass [Unknown]

NARRATIVE: CASE EVENT DATE: 20220401
